FAERS Safety Report 9458117 (Version 1)
Quarter: 2013Q3

REPORT INFORMATION
  Report Type: Spontaneous
  Country: GB (occurrence: GB)
  Receive Date: 20130814
  Receipt Date: 20130814
  Transmission Date: 20140515
  Serious: Yes (Death)
  Sender: FDA-Public Use
  Company Number: GB-ROXANE LABORATORIES, INC.-2013-RO-01343RO

PATIENT
  Age: 61 Year
  Sex: 0

DRUGS (2)
  1. MORPHINE [Suspect]
     Route: 048
  2. ORAMORPH [Suspect]

REACTIONS (1)
  - Overdose [Fatal]
